FAERS Safety Report 5550199-9 (Version None)
Quarter: 2007Q4

REPORT INFORMATION
  Report Type: 
  Country: None (occurrence: None)
  Receive Date: 20071212
  Receipt Date: 20070425
  Transmission Date: 20080405
  Serious: No
  Sender: FDA-Public Use
  Company Number: US-AMGEN-KDL220304

PATIENT
  Sex: Male

DRUGS (2)
  1. ENBREL [Suspect]
     Indication: PSORIATIC ARTHROPATHY
     Route: 058
     Dates: start: 20070130, end: 20070401
  2. ENBREL [Suspect]
     Indication: PSORIASIS

REACTIONS (8)
  - COUGH [None]
  - FAECES DISCOLOURED [None]
  - HEADACHE [None]
  - INJECTION SITE PAIN [None]
  - MUSCULAR WEAKNESS [None]
  - PULMONARY CONGESTION [None]
  - RHINITIS ALLERGIC [None]
  - SINUSITIS [None]
